FAERS Safety Report 16650503 (Version 2)
Quarter: 2019Q3

REPORT INFORMATION
  Report Type: Report from Study
  Country: CA (occurrence: CA)
  Receive Date: 20190731
  Receipt Date: 20190802
  Transmission Date: 20191004
  Serious: Yes (Other)
  Sender: FDA-Public Use
  Company Number: CA-TAKEDA-2019TUS045897

PATIENT
  Age: 68 Year
  Sex: Male

DRUGS (2)
  1. IXAZOMIB [Suspect]
     Active Substance: IXAZOMIB
     Indication: RENAL AMYLOIDOSIS
     Dosage: 2.3 MILLIGRAM
     Route: 048
     Dates: start: 201702, end: 20190711
  2. IXAZOMIB [Suspect]
     Active Substance: IXAZOMIB
     Indication: CARDIAC AMYLOIDOSIS

REACTIONS (1)
  - Cardiac failure [Unknown]
